FAERS Safety Report 9550296 (Version 1)
Quarter: 2013Q3

REPORT INFORMATION
  Report Type: Spontaneous
  Country: US (occurrence: US)
  Receive Date: 20130924
  Receipt Date: 20130924
  Transmission Date: 20140515
  Serious: No
  Sender: FDA-Public Use
  Company Number: US-SANOFI-AVENTIS-2013SA072266

PATIENT
  Age: 38 Year
  Sex: Female

DRUGS (6)
  1. AUBAGIO [Suspect]
     Indication: MULTIPLE SCLEROSIS
     Dosage: PRODUCT START DATE : ONE MONTH AGO
     Route: 048
     Dates: start: 201306
  2. PROPRANOLOL [Concomitant]
     Route: 065
  3. ALLEGRA [Concomitant]
     Route: 065
  4. VITAMIN B [Concomitant]
     Route: 065
  5. VITAMIN D [Concomitant]
     Dosage: DOSE:2000 UNIT(S)
     Route: 065
  6. REBIF [Concomitant]
     Route: 065

REACTIONS (7)
  - Alopecia [Unknown]
  - Diarrhoea [Unknown]
  - Nausea [Unknown]
  - Dyspnoea [Unknown]
  - Hypoaesthesia [Unknown]
  - Burning sensation [Unknown]
  - Paraesthesia [Unknown]
